FAERS Safety Report 10730054 (Version 3)
Quarter: 2015Q1

REPORT INFORMATION
  Report Type: Spontaneous
  Country: US (occurrence: US)
  Receive Date: 20150122
  Receipt Date: 20150227
  Transmission Date: 20150721
  Serious: No
  Sender: FDA-Public Use
  Company Number: US-009507513-1501USA008424

PATIENT
  Sex: Female

DRUGS (1)
  1. NASONEX [Suspect]
     Active Substance: MOMETASONE FUROATE
     Indication: RHINITIS
     Dosage: 2 SPRAYS IN EACH NOSTRIL/ONCE A DAY, STENGTH WAS 50 (UNITE UNSPECIFIED)
     Route: 045
     Dates: start: 200701

REACTIONS (6)
  - Insomnia [Not Recovered/Not Resolved]
  - Product quality issue [Unknown]
  - Upper-airway cough syndrome [Not Recovered/Not Resolved]
  - Drug ineffective [Unknown]
  - Product packaging quantity issue [Unknown]
  - Oropharyngeal discomfort [Not Recovered/Not Resolved]
